FAERS Safety Report 9407877 (Version 3)
Quarter: 2014Q1

REPORT INFORMATION
  Report Type: Spontaneous
  Country: JP (occurrence: JP)
  Receive Date: 20130718
  Receipt Date: 20140214
  Transmission Date: 20141002
  Serious: Yes (Death, Hospitalization, Other)
  Sender: FDA-Public Use
  Company Number: JP-ELI_LILLY_AND_COMPANY-JP201306004234

PATIENT
  Age: 70 Year
  Sex: Male

DRUGS (10)
  1. ALIMTA [Suspect]
     Indication: LUNG ADENOCARCINOMA STAGE III
     Dosage: 802.5 MG, UNK
     Route: 042
     Dates: start: 20121106, end: 20130312
  2. ALIMTA [Suspect]
     Dosage: 760 MG, UNK
     Route: 042
     Dates: start: 20130507, end: 20130507
  3. AVASTIN [Suspect]
     Indication: LUNG ADENOCARCINOMA STAGE III
     Dosage: 732.75 MG, UNK
     Route: 042
     Dates: start: 20130507, end: 20130507
  4. CARBOPLATIN [Concomitant]
     Indication: LUNG ADENOCARCINOMA STAGE III
     Dosage: 450 MG, UNK
     Route: 065
     Dates: start: 20121106, end: 20130312
  5. FRESMIN S [Concomitant]
     Indication: PROPHYLAXIS
     Dosage: 1000 UG, UNK
     Route: 030
  6. RINDERON [Concomitant]
     Indication: DECREASED APPETITE
     Dosage: 0.5 MG, UNK
     Route: 048
  7. RINDERON [Concomitant]
     Indication: MALAISE
  8. PANVITAN [Concomitant]
     Indication: PROPHYLAXIS
     Dosage: 1 G, UNK
     Route: 048
  9. OXYCONTIN [Concomitant]
     Indication: PAIN
     Dosage: 20 MG, UNK
     Route: 048
  10. OXYCONTIN [Concomitant]
     Indication: COUGH

REACTIONS (6)
  - Interstitial lung disease [Fatal]
  - Disseminated intravascular coagulation [Unknown]
  - Pneumothorax [Not Recovered/Not Resolved]
  - Pneumonia [Unknown]
  - Metastases to lung [Unknown]
  - Pneumothorax spontaneous [Unknown]
